FAERS Safety Report 22535495 (Version 1)
Quarter: 2023Q2

REPORT INFORMATION
  Report Type: Spontaneous
  Country: US (occurrence: US)
  Receive Date: 20230608
  Receipt Date: 20230608
  Transmission Date: 20230722
  Serious: No
  Sender: FDA-Public Use
  Company Number: US-PFIZER INC-202300209128

PATIENT
  Age: 17 Year
  Sex: Male
  Weight: 70.295 kg

DRUGS (1)
  1. GENOTROPIN [Suspect]
     Active Substance: SOMATROPIN
     Indication: Growth hormone deficiency
     Dosage: 4 MG, DAILY
     Dates: start: 202302

REACTIONS (2)
  - Device breakage [Unknown]
  - Drug dose omission by device [Unknown]

NARRATIVE: CASE EVENT DATE: 20230530
